FAERS Safety Report 7725364-2 (Version None)
Quarter: 2011Q3

REPORT INFORMATION
  Report Type: 
  Country: None (occurrence: None)
  Receive Date: 20110902
  Receipt Date: 20110824
  Transmission Date: 20111222
  Serious: Yes (Other)
  Sender: FDA-Public Use
  Company Number: JP-JNJFOC-20110810178

PATIENT
  Age: 56 Year
  Sex: Female

DRUGS (22)
  1. LEVOTHYROXINE SODIUM [Concomitant]
     Route: 065
  2. LOPERAMIDE HCL [Concomitant]
     Route: 065
  3. MEROPENEM [Concomitant]
     Route: 065
  4. CALCIUM LACTATE [Concomitant]
     Route: 065
  5. SERENAL [Concomitant]
     Route: 065
  6. ZOFRAN [Concomitant]
     Route: 065
  7. NEUTROGIN [Concomitant]
     Route: 065
  8. ALFAROL [Concomitant]
     Route: 065
  9. BISOPROLOL FUMARATE [Concomitant]
     Route: 065
  10. BIO THREE [Concomitant]
     Route: 065
  11. LEVOFLOXACIN [Suspect]
     Indication: PRODUCT USED FOR UNKNOWN INDICATION
     Route: 065
  12. LOXONIN [Concomitant]
     Route: 065
  13. SODIUM BICARBONATE [Concomitant]
     Route: 065
  14. CYCLOPHOSPHAMIDE [Concomitant]
     Route: 065
  15. GABAPENTIN [Concomitant]
     Route: 065
  16. TRASTUZUMAB [Concomitant]
     Route: 065
  17. ASPARA K [Concomitant]
     Route: 065
  18. DECADRON [Concomitant]
     Route: 065
  19. VOLTAREN [Concomitant]
     Route: 065
  20. GLUTATHIONE [Concomitant]
     Route: 065
  21. TAXOTERE [Concomitant]
     Route: 065
  22. NEO-MERCAZOLE TAB [Concomitant]
     Route: 065

REACTIONS (3)
  - BRONCHITIS [None]
  - MUSCULOSKELETAL STIFFNESS [None]
  - RHEUMATOID ARTHRITIS [None]
